FAERS Safety Report 20348059 (Version 1)
Quarter: 2022Q1

REPORT INFORMATION
  Report Type: Report from Study
  Country: US (occurrence: US)
  Receive Date: 20220118
  Receipt Date: 20220118
  Transmission Date: 20220423
  Serious: Yes (Hospitalization)
  Sender: FDA-Public Use
  Company Number: US-ABBVIE-22K-163-4237736-00

PATIENT
  Sex: Female

DRUGS (18)
  1. DUOPA [Suspect]
     Active Substance: CARBIDOPA\LEVODOPA
     Indication: Product used for unknown indication
     Route: 050
     Dates: start: 20191210
  2. DUOPA [Suspect]
     Active Substance: CARBIDOPA\LEVODOPA
  3. SINEMET [Concomitant]
     Active Substance: CARBIDOPA\LEVODOPA
     Indication: Product used for unknown indication
     Dosage: 25-100MG
     Route: 048
  4. FLUTICASONE [Concomitant]
     Active Substance: FLUTICASONE
     Indication: Product used for unknown indication
     Dosage: 50MCG
     Route: 045
  5. SERTRALINE [Concomitant]
     Active Substance: SERTRALINE HYDROCHLORIDE
     Indication: Product used for unknown indication
     Route: 048
  6. VITAMIN B6 [Concomitant]
     Active Substance: PYRIDOXINE HYDROCHLORIDE
     Indication: Product used for unknown indication
     Route: 048
  7. LORATADINE [Concomitant]
     Active Substance: LORATADINE
     Indication: Product used for unknown indication
     Route: 048
  8. Amitriptyline (NON-ABBVIE) [Concomitant]
     Indication: Product used for unknown indication
     Dosage: 25MG
     Route: 048
  9. Myrbetriq (NON-ABBVIE) [Concomitant]
     Indication: Product used for unknown indication
     Dosage: 50MG
     Route: 048
  10. Multivitamin (NON-ABBVIE) [Concomitant]
     Indication: Product used for unknown indication
     Dosage: 1 DOSE
     Route: 048
  11. Docusate (NON-ABBVIE) [Concomitant]
     Indication: Product used for unknown indication
     Dosage: 100MG
     Route: 048
  12. Aspirin (NON-ABBVIE) [Concomitant]
     Indication: Product used for unknown indication
     Dosage: 81MG
     Route: 048
  13. Miralax (NON-ABBVIE) [Concomitant]
     Indication: Product used for unknown indication
     Dosage: 17G/DOSE
     Route: 048
  14. Probiotic (NON-ABBVIE) [Concomitant]
     Indication: Product used for unknown indication
     Dosage: 1 DOSE
     Route: 048
  15. Ocutive (NON-ABBVIE) [Concomitant]
     Indication: Product used for unknown indication
     Dosage: 1000-60-2MG
     Route: 048
  16. Vitamin D3 (NON-ABBVIE) [Concomitant]
     Indication: Product used for unknown indication
     Dosage: 5000UNIT
     Route: 048
  17. Neupro (NON-ABBVIE) [Concomitant]
     Indication: Product used for unknown indication
     Dosage: 3MG/24IIR
     Route: 061
  18. Omeprazole (NON-ABBVIE) [Concomitant]
     Indication: Product used for unknown indication
     Dosage: 20MG
     Route: 061

REACTIONS (1)
  - Adverse drug reaction [Unknown]
